FAERS Safety Report 7353316-3 (Version None)
Quarter: 2011Q1

REPORT INFORMATION
  Report Type: 
  Country: None (occurrence: None)
  Receive Date: 20110315
  Receipt Date: 20110228
  Transmission Date: 20110831
  Serious: Yes (Hospitalization)
  Sender: FDA-Public Use
  Company Number: US-ACTELION-A-US2011-45700

PATIENT

DRUGS (3)
  1. VELETRI [Suspect]
     Indication: PULMONARY ARTERIAL HYPERTENSION
     Dosage: 23 NG/KG, PER MIN
     Route: 042
     Dates: start: 20101120
  2. SILDENAFIL [Concomitant]
  3. GABAPENTIN [Concomitant]

REACTIONS (2)
  - MIGRAINE [None]
  - CHILLS [None]
